FAERS Safety Report 8335574-1 (Version None)
Quarter: 2012Q2

REPORT INFORMATION
  Report Type: 
  Country: None (occurrence: None)
  Receive Date: 20120504
  Receipt Date: 20120425
  Transmission Date: 20120825
  Serious: Yes (Life-Threatening, Hospitalization)
  Sender: FDA-Public Use
  Company Number: FR-BRISTOL-MYERS SQUIBB COMPANY-15841554

PATIENT
  Age: 58 Year
  Sex: Male

DRUGS (6)
  1. AMLODIPINE BESYLATE [Concomitant]
     Indication: HYPERTENSION
     Dosage: 1DF=20 TABLETS
  2. ASPIRIN [Concomitant]
     Route: 048
  3. GLUCOPHAGE [Suspect]
     Indication: TYPE 2 DIABETES MELLITUS
     Dosage: SINGLE DOSE
     Route: 048
  4. LASIX [Concomitant]
     Indication: MYOCARDIAL ISCHAEMIA
     Dosage: 20 DF,SINGLE DOSE
     Route: 048
  5. AMARYL [Concomitant]
     Indication: TYPE 2 DIABETES MELLITUS
     Dosage: SINGLE DOSE
     Route: 048
  6. COTRIATEC [Concomitant]
     Indication: MYOCARDIAL ISCHAEMIA
     Dosage: SINGLE DOSE
     Route: 048

REACTIONS (4)
  - RENAL FAILURE ACUTE [None]
  - MULTIPLE DRUG OVERDOSE [None]
  - SUICIDE ATTEMPT [None]
  - HYPERLACTACIDAEMIA [None]
